FAERS Safety Report 15880197 (Version 1)
Quarter: 2019Q1

REPORT INFORMATION
  Report Type: Spontaneous
  Country: BR (occurrence: BR)
  Receive Date: 20190128
  Receipt Date: 20190128
  Transmission Date: 20190417
  Serious: Yes (Hospitalization)
  Sender: FDA-Public Use
  Company Number: BR-PFIZER INC-2019030565

PATIENT
  Age: 65 Year
  Sex: Female

DRUGS (1)
  1. LYRICA [Suspect]
     Active Substance: PREGABALIN
     Indication: PAIN
     Dosage: 300 MG (2 CAPSULES), EVERY 12 HOURS
     Dates: start: 20190116, end: 201901

REACTIONS (6)
  - Blood pressure decreased [Unknown]
  - Feeling abnormal [Unknown]
  - Dizziness [Unknown]
  - Pulse absent [Unknown]
  - Vomiting [Unknown]
  - Dysstasia [Unknown]

NARRATIVE: CASE EVENT DATE: 20190116
